FAERS Safety Report 19312856 (Version 1)
Quarter: 2021Q2

REPORT INFORMATION
  Report Type: Spontaneous
  Country: US (occurrence: US)
  Receive Date: 20210526
  Receipt Date: 20210526
  Transmission Date: 20210717
  Serious: No
  Sender: FDA-Public Use
  Company Number: None

PATIENT
  Sex: Male

DRUGS (1)
  1. OCTAGAM IMMUNE GLOBULIN (HUMAN) [Suspect]
     Active Substance: HUMAN IMMUNOGLOBULIN G
     Indication: ENCEPHALITIS
     Dosage: OTHER DOSE:170GM; OVER 4?5 DAYS EVERY 4 WEEKS?
     Route: 042
     Dates: start: 202008

REACTIONS (3)
  - Vomiting [None]
  - Diarrhoea [None]
  - Nausea [None]
